FAERS Safety Report 18341515 (Version 1)
Quarter: 2020Q4

REPORT INFORMATION
  Report Type: Spontaneous
  Country: US (occurrence: US)
  Receive Date: 20201004
  Receipt Date: 20201004
  Transmission Date: 20210113
  Serious: Yes (Hospitalization, Other)
  Sender: FDA-Public Use
  Company Number: US-AMGEN-USASP2020157387

PATIENT
  Age: 73 Year
  Sex: Male

DRUGS (14)
  1. VITAMIN D [COLECALCIFEROL] [Concomitant]
     Active Substance: CHOLECALCIFEROL
     Dosage: UNK
  2. COUMADIN [Concomitant]
     Active Substance: WARFARIN SODIUM
     Indication: DEEP VEIN THROMBOSIS
     Dosage: 8 MILLIGRAM, QD
  3. CLONIDINE. [Concomitant]
     Active Substance: CLONIDINE
     Dosage: 0.3 MILLIGRAM, BID
  4. BENADRYL [ACRIVASTINE] [Concomitant]
     Active Substance: ACRIVASTINE
     Dosage: UNK UNK, AS NECESSARY
  5. IRON POLYSACCHARIDE COMPLEX [Concomitant]
     Dosage: 300 MILLIGRAM, QD
  6. ALLOPURINOL. [Concomitant]
     Active Substance: ALLOPURINOL
     Dosage: 100 MILLIGRAM, QD
  7. EPOETIN ALFA [Suspect]
     Active Substance: ERYTHROPOIETIN
     Indication: PRODUCT USED FOR UNKNOWN INDICATION
     Dosage: 10000 UNIT, 2 TIMES/WK
     Route: 058
  8. CALCIUM CARBONATE. [Concomitant]
     Active Substance: CALCIUM CARBONATE
     Dosage: 3.6 GRAM (EACH MEAL)
  9. CALCITRIOL. [Concomitant]
     Active Substance: CALCITRIOL
     Dosage: 1 MICROGRAM, 3 TIMES/WK
     Route: 042
  10. TERAZOSIN [Concomitant]
     Active Substance: TERAZOSIN HYDROCHLORIDE
     Dosage: 10 MILLIGRAM, QHS
  11. ISOSORBIDE DINITRATE. [Concomitant]
     Active Substance: ISOSORBIDE DINITRATE
     Dosage: 5 MILLIGRAM, QD
  12. SORBITOL. [Concomitant]
     Active Substance: SORBITOL
     Dosage: UNK UNK, AS NECESSARY
  13. NEPHROCAPS [ASCORBIC ACID;BIOTIN;CYANOCOBALAMIN;FOLIC ACID;NICOTINAMID [Concomitant]
     Dosage: UNK UNK, QD
  14. CALCIJEX [Concomitant]
     Active Substance: CALCITRIOL
     Dosage: UNK

REACTIONS (1)
  - Calciphylaxis [Recovered/Resolved]

NARRATIVE: CASE EVENT DATE: 199912
